FAERS Safety Report 9088235 (Version 1)
Quarter: 2013Q1

REPORT INFORMATION
  Report Type: Spontaneous
  Country: BE (occurrence: BE)
  Receive Date: 20130201
  Receipt Date: 20130201
  Transmission Date: 20140127
  Serious: Yes (Life-Threatening, Hospitalization, Other)
  Sender: FDA-Public Use
  Company Number: PHHY2013BE009153

PATIENT
  Age: 57 Year
  Sex: Female
  Weight: 84 kg

DRUGS (6)
  1. LEPONEX [Suspect]
     Indication: SCHIZOPHRENIA
     Dosage: 200 MG, BID
     Route: 048
     Dates: end: 20121203
  2. SOLIAN [Concomitant]
     Indication: SCHIZOPHRENIA
     Dosage: UNK UKN, BID
     Route: 048
     Dates: end: 20121203
  3. RISPERDAL [Concomitant]
     Indication: SCHIZOPHRENIA
     Dosage: 1 MG, BID
     Route: 048
  4. ARTANE [Concomitant]
     Indication: SCHIZOPHRENIA
     Dosage: 5 MG, TID
     Route: 048
  5. ARTANE [Concomitant]
     Dosage: 2 MG, BID
     Route: 048
  6. DEPAKINE CHRONO [Concomitant]
     Indication: SCHIZOPHRENIA
     Dosage: 500 MG, BID
     Route: 048

REACTIONS (4)
  - Renal tubular necrosis [Recovered/Resolved with Sequelae]
  - Rhabdomyolysis [Recovered/Resolved with Sequelae]
  - Gout [Recovered/Resolved with Sequelae]
  - Critical illness polyneuropathy [Recovered/Resolved with Sequelae]
